FAERS Safety Report 8132803-4 (Version None)
Quarter: 2012Q1

REPORT INFORMATION
  Report Type: 
  Country: None (occurrence: None)
  Receive Date: 20120213
  Receipt Date: 20120202
  Transmission Date: 20120608
  Serious: Yes (Disabling)
  Sender: FDA-Public Use
  Company Number: CA-MERCK-1107USA03738

PATIENT
  Age: 65 Year
  Sex: Male
  Weight: 75 kg

DRUGS (4)
  1. SINEMET CR [Suspect]
     Indication: PARKINSON'S DISEASE
     Route: 048
     Dates: start: 20091101, end: 20110701
  2. SINEMET CR [Suspect]
     Dosage: HALF TABLET
     Route: 048
     Dates: start: 20110701, end: 20110801
  3. SINEMET CR [Suspect]
     Route: 048
     Dates: start: 20110801
  4. SINEMET CR [Suspect]
     Route: 048
     Dates: start: 20080101

REACTIONS (5)
  - OVERDOSE [None]
  - DRUG INEFFECTIVE [None]
  - DYSKINESIA [None]
  - DISABILITY [None]
  - MUSCLE SPASMS [None]
